FAERS Safety Report 6588056-1 (Version None)
Quarter: 2010Q1

REPORT INFORMATION
  Report Type: 
  Country: None (occurrence: None)
  Receive Date: 20100218
  Receipt Date: 20100208
  Transmission Date: 20100710
  Serious: Yes (Hospitalization, Other)
  Sender: FDA-Public Use
  Company Number: US-AMGEN-QUU391484

PATIENT
  Sex: Female

DRUGS (2)
  1. ENBREL [Suspect]
     Indication: RHEUMATOID ARTHRITIS
     Route: 058
     Dates: start: 19970901
  2. METHOTREXATE [Concomitant]

REACTIONS (7)
  - CROHN'S DISEASE [None]
  - JOINT DESTRUCTION [None]
  - JOINT INJURY [None]
  - RECTAL HAEMORRHAGE [None]
  - SCIATIC NERVE INJURY [None]
  - THROMBOSIS [None]
  - VOMITING [None]
